FAERS Safety Report 11006738 (Version 1)
Quarter: 2015Q2

REPORT INFORMATION
  Report Type: Spontaneous
  Country: US (occurrence: US)
  Receive Date: 20150409
  Receipt Date: 20150409
  Transmission Date: 20150821
  Serious: No
  Sender: FDA-Public Use
  Company Number: US-ALLERGAN-1424436US

PATIENT
  Age: 59 Year
  Sex: Female

DRUGS (1)
  1. LATISSE [Suspect]
     Active Substance: BIMATOPROST
     Indication: HYPOTRICHOSIS
     Dosage: 2 GTT, QHS
     Dates: start: 201405

REACTIONS (3)
  - Ocular hyperaemia [Unknown]
  - Expired product administered [Unknown]
  - Eye pruritus [Unknown]

NARRATIVE: CASE EVENT DATE: 20140919
